FAERS Safety Report 4784276-7 (Version None)
Quarter: 2005Q3

REPORT INFORMATION
  Report Type: 
  Country: None (occurrence: None)
  Receive Date: 20050930
  Receipt Date: 20050916
  Transmission Date: 20060218
  Serious: Yes (Hospitalization)
  Sender: FDA-Public Use
  Company Number: BEWYE984416SEP05

PATIENT
  Sex: Female

DRUGS (2)
  1. ENBREL [Suspect]
     Indication: PSORIATIC ARTHROPATHY
     Dosage: 25 MG 2X / WEEK
     Route: 058
     Dates: start: 20040322
  2. ENBREL [Suspect]
     Route: 058
     Dates: start: 20050101

REACTIONS (2)
  - BREAST INFECTION [None]
  - FIBROCYSTIC BREAST DISEASE [None]
